FAERS Safety Report 5673937-3 (Version None)
Quarter: 2008Q2

REPORT INFORMATION
  Report Type: 
  Country: None (occurrence: None)
  Receive Date: 20080226
  Receipt Date: 20070619
  Transmission Date: 20081010
  Serious: Yes (Hospitalization)
  Sender: FDA-Public Use
  Company Number: DSA_30167_2007

PATIENT
  Age: 53 Year
  Sex: Female

DRUGS (8)
  1. VASOTEC [Suspect]
     Indication: HYPERTENSION
     Dosage: (DF ORAL)
     Route: 048
     Dates: start: 20000224
  2. VASOTEC [Suspect]
     Indication: HYPERTENSION
     Dosage: (DF ORAL)
     Route: 048
     Dates: end: 20000201
  3. VASOTEC [Suspect]
     Indication: HYPERTENSION
     Dosage: (10 MG BID ORAL)
     Route: 048
     Dates: start: 20000301
  4. TIAZAC [Suspect]
     Dosage: (DF)
     Dates: start: 20000201, end: 20000201
  5. TIAZAC [Suspect]
     Dosage: (DF)
     Dates: end: 20000201
  6. BETAPACE [Suspect]
     Dosage: (DF)
     Dates: start: 20000201
  7. BETAPACE [Suspect]
     Dosage: (DF)
     Dates: end: 20000201
  8. NIPRIDE [Concomitant]

REACTIONS (2)
  - BLOOD PRESSURE DECREASED [None]
  - BRADYCARDIA [None]
